FAERS Safety Report 5488907-8 (Version None)
Quarter: 2007Q4

REPORT INFORMATION
  Report Type: 
  Country: None (occurrence: None)
  Receive Date: 20071015
  Receipt Date: 20070625
  Transmission Date: 20080405
  Serious: No
  Sender: FDA-Public Use
  Company Number: 2007SP002338

PATIENT
  Age: 77 Year
  Sex: Female
  Weight: 64.8644 kg

DRUGS (7)
  1. LUNESTA [Suspect]
     Indication: INSOMNIA
     Dosage: 3 MG; ORAL
     Route: 048
     Dates: start: 20070622, end: 20070624
  2. ATENOLOL [Concomitant]
  3. DILTIAZEN HYDROCHLORIDE [Concomitant]
  4. ACTONEL [Concomitant]
  5. ACETYLSALICYLIC ACID SRT [Concomitant]
  6. IRON [Concomitant]
  7. AMBIEN [Concomitant]

REACTIONS (2)
  - DRUG INEFFECTIVE [None]
  - MIDDLE INSOMNIA [None]
